FAERS Safety Report 10549502 (Version 1)
Quarter: 2014Q4

REPORT INFORMATION
  Report Type: Spontaneous
  Country: US (occurrence: None)
  Receive Date: 20141015
  Receipt Date: 20141015
  Transmission Date: 20150529
  Serious: No
  Sender: FDA-Public Use
  Company Number: 2014US003512

PATIENT
  Age: 63 Year
  Sex: Male

DRUGS (10)
  1. ICLUSIG [Suspect]
     Active Substance: PONATINIB
     Indication: CHRONIC MYELOID LEUKAEMIA
     Route: 048
  2. DEXAMETHASONE (DEXAMETHASONE SODIUM PHOSPHATE) [Concomitant]
  3. ALLOPURINOL (ALLOPURINOL) [Concomitant]
     Active Substance: ALLOPURINOL
  4. NOXAFIL [Concomitant]
     Active Substance: POSACONAZOLE
  5. VINCRISTINE SULFATE (VINCRISTINE SULFATE) [Concomitant]
     Active Substance: VINCRISTINE SULFATE
  6. LEVOFLOXACIN (LEVOFLOXACIN) [Concomitant]
     Active Substance: LEVOFLOXACIN
  7. NEULASTA [Concomitant]
     Active Substance: PEGFILGRASTIM
  8. VALTREX [Concomitant]
     Active Substance: VALACYCLOVIR HYDROCHLORIDE
  9. CYTARABINE (CYTARABINE) [Concomitant]
     Active Substance: CYTARABINE
  10. METHOTREXATE (METHOTREXATE) [Concomitant]
     Active Substance: METHOTREXATE

REACTIONS (1)
  - Blood count abnormal [None]
